FAERS Safety Report 25984187 (Version 1)
Quarter: 2025Q4

REPORT INFORMATION
  Report Type: Spontaneous
  Country: US (occurrence: US)
  Receive Date: 20251031
  Receipt Date: 20251031
  Transmission Date: 20260119
  Serious: Yes (Other)
  Sender: TEVA
  Company Number: US-TEVA-VS-3384512

PATIENT
  Age: 63 Year
  Sex: Female

DRUGS (4)
  1. AJOVY [Suspect]
     Active Substance: FREMANEZUMAB-VFRM
     Indication: Migraine
     Dosage: 225 MG/1.5 ML
     Route: 065
     Dates: start: 202510
  2. UBRELVY [Concomitant]
     Active Substance: UBROGEPANT
     Indication: Product used for unknown indication
     Route: 065
  3. PHENERGAN [Concomitant]
     Active Substance: PROMETHAZINE HYDROCHLORIDE
     Indication: Product used for unknown indication
     Route: 065
  4. ZOFRAN [Concomitant]
     Active Substance: ONDANSETRON HYDROCHLORIDE
     Indication: Product used for unknown indication
     Route: 065

REACTIONS (9)
  - Osteoarthritis [Unknown]
  - Brain fog [Unknown]
  - Aphasia [Unknown]
  - Muscle spasms [Unknown]
  - Malaise [Unknown]
  - Pain in extremity [Unknown]
  - Adverse event [Unknown]
  - Influenza like illness [Unknown]
  - Migraine [Unknown]

NARRATIVE: CASE EVENT DATE: 20251001
